FAERS Safety Report 16825902 (Version 1)
Quarter: 2019Q3

REPORT INFORMATION
  Report Type: Spontaneous
  Country: IT (occurrence: IT)
  Receive Date: 20190919
  Receipt Date: 20190919
  Transmission Date: 20191005
  Serious: Yes (Hospitalization)
  Sender: FDA-Public Use
  Company Number: IT-ASTRAZENECA-2019SF31840

PATIENT
  Age: 57 Year
  Sex: Female
  Weight: 77 kg

DRUGS (3)
  1. RAMIPRIL. [Concomitant]
     Active Substance: RAMIPRIL
     Dosage: 5.0MG UNKNOWN
  2. XIGDUO XR [Suspect]
     Active Substance: DAPAGLIFLOZIN PROPANEDIOL\METFORMIN HYDROCHLORIDE
     Indication: DIABETES MELLITUS
     Route: 048
  3. CRESTOR [Concomitant]
     Active Substance: ROSUVASTATIN CALCIUM

REACTIONS (3)
  - Emphysematous pyelonephritis [Not Recovered/Not Resolved]
  - Pyelonephritis acute [Not Recovered/Not Resolved]
  - Klebsiella sepsis [Not Recovered/Not Resolved]

NARRATIVE: CASE EVENT DATE: 20190619
